FAERS Safety Report 6504554-0 (Version None)
Quarter: 2009Q4

REPORT INFORMATION
  Report Type: 
  Country: None (occurrence: None)
  Receive Date: 20091215
  Receipt Date: 20091204
  Transmission Date: 20100525
  Serious: Yes (Hospitalization)
  Sender: FDA-Public Use
  Company Number: 2009AC000211

PATIENT
  Age: 51 Year
  Sex: Male

DRUGS (43)
  1. DIGOXIN [Suspect]
     Dosage: 0.125 MG;QD;PO
     Route: 048
     Dates: start: 20080501
  2. DIGOXIN [Suspect]
     Dosage: 0.25 MG; PO
     Route: 048
  3. LASIC [Concomitant]
  4. ASPIRIN [Concomitant]
  5. LORATADINE [Concomitant]
  6. LORATADINE [Concomitant]
  7. MINOCIN [Concomitant]
  8. COREG [Concomitant]
  9. VITAMIN D [Concomitant]
  10. TRICOR [Concomitant]
  11. EPLERENONE [Concomitant]
  12. LYRICA [Concomitant]
  13. DIOVAN [Concomitant]
  14. PLAVIX [Concomitant]
  15. PRAVASTATIN [Concomitant]
  16. HYDROXYZINE [Concomitant]
  17. CALCIUM [Concomitant]
  18. ZELNORM [Concomitant]
  19. COREG [Concomitant]
  20. DIOVAN [Concomitant]
  21. HYDROXYZINE [Concomitant]
  22. PLAVIX [Concomitant]
  23. PREVACID [Concomitant]
  24. INSPRA [Concomitant]
  25. LIPITOR [Concomitant]
  26. CLOTRIMAZOLEBETHAMETH CREAM [Concomitant]
  27. MINOCYCLINE [Concomitant]
  28. PRAVASTATIN [Concomitant]
  29. LEVAQUIN [Concomitant]
  30. CLARITHROMYCIN [Concomitant]
  31. NITROGLYCERIN [Concomitant]
  32. KETOROLAC TROMETHAMINE [Concomitant]
  33. TRICOR [Concomitant]
  34. ACARBOSE [Concomitant]
  35. CIPRO [Concomitant]
  36. CYCLOBENZAPRINE [Concomitant]
  37. TAMIFLU [Concomitant]
  38. DIOVAN [Concomitant]
  39. PLAVIX [Concomitant]
  40. INSPRA [Concomitant]
  41. COREG [Concomitant]
  42. FUROSEMIDE [Concomitant]
  43. MINOCYCLINE [Concomitant]

REACTIONS (22)
  - ASTHENIA [None]
  - AUTONOMIC NEUROPATHY [None]
  - BASAL CELL CARCINOMA [None]
  - BUNDLE BRANCH BLOCK LEFT [None]
  - CARDIAC DISORDER [None]
  - CARDIAC FAILURE CONGESTIVE [None]
  - CARDIOACTIVE DRUG LEVEL INCREASED [None]
  - CARDIOMEGALY [None]
  - CAROTIDYNIA [None]
  - CHEST PAIN [None]
  - CORONARY ARTERY DISEASE [None]
  - DIZZINESS [None]
  - DYSPHAGIA [None]
  - DYSPNOEA [None]
  - FATIGUE [None]
  - GLUCOSE TOLERANCE IMPAIRED [None]
  - HYPOKINESIA [None]
  - HYPOTENSION [None]
  - INJURY [None]
  - NEUROPATHY PERIPHERAL [None]
  - RESPIRATORY FAILURE [None]
  - SLEEP APNOEA SYNDROME [None]
